FAERS Safety Report 7380991-X (Version None)
Quarter: 2011Q1

REPORT INFORMATION
  Report Type: 
  Country: None (occurrence: None)
  Receive Date: 20110329
  Receipt Date: 20110321
  Transmission Date: 20110831
  Serious: Yes (Other)
  Sender: FDA-Public Use
  Company Number: US-TEVA-272501USA

PATIENT
  Age: 45 Year
  Sex: Male

DRUGS (1)
  1. DIDANOSINE [Suspect]
     Indication: ANTIRETROVIRAL THERAPY
     Dates: start: 19980101

REACTIONS (2)
  - PORTAL HYPERTENSION [None]
  - LIVER DISORDER [None]
